FAERS Safety Report 10413154 (Version 2)
Quarter: 2014Q3

REPORT INFORMATION
  Report Type: Spontaneous
  Country: US (occurrence: US)
  Receive Date: 20140827
  Receipt Date: 20140901
  Transmission Date: 20150326
  Serious: Yes (Other)
  Sender: FDA-Public Use
  Company Number: US-BRISTOL-MYERS SQUIBB COMPANY-21335948

PATIENT
  Age: 39 Year
  Sex: Male
  Weight: 99.77 kg

DRUGS (1)
  1. ABILIFY [Suspect]
     Active Substance: ARIPIPRAZOLE
     Indication: POST-TRAUMATIC STRESS DISORDER
     Dosage: INCREASED: 30MG
     Dates: start: 2010

REACTIONS (8)
  - Off label use [Unknown]
  - Vision blurred [Unknown]
  - Blood triglycerides increased [Unknown]
  - Pain [Not Recovered/Not Resolved]
  - Kidney enlargement [Not Recovered/Not Resolved]
  - Retinal degeneration [Unknown]
  - Nerve injury [Unknown]
  - Retinal scar [Unknown]
